FAERS Safety Report 16057165 (Version 2)
Quarter: 2019Q2

REPORT INFORMATION
  Report Type: Report from Study
  Country: US (occurrence: CG)
  Receive Date: 20190311
  Receipt Date: 20190425
  Transmission Date: 20190711
  Serious: Yes (Hospitalization, Other)
  Sender: FDA-Public Use
  Company Number: IND-US-009507513-1902USA012290

PATIENT
  Age: 42 Year
  Sex: Male

DRUGS (1)
  1. ZAIRE EBOLAVIRUS (KIKWIT) GLYCOPROTEIN RECOMBINANT VECTOR VACCINE RVSV [Suspect]
     Active Substance: RECOMBINANT VESICULAR STOMATITIS VIRUS PSEUDOTYPED WITH EBOLA ZAIRE GLYCOPROTEIN
     Indication: PROPHYLAXIS
     Dates: start: 20190125

REACTIONS (4)
  - Mental status changes [Not Recovered/Not Resolved]
  - Multiple organ dysfunction syndrome [Not Recovered/Not Resolved]
  - Post procedural complication [Not Recovered/Not Resolved]
  - Malaria [Not Recovered/Not Resolved]

NARRATIVE: CASE EVENT DATE: 20190126
